FAERS Safety Report 8357485 (Version 2)
Quarter: 2013Q1

REPORT INFORMATION
  Report Type: Spontaneous
  Country: US (occurrence: None)
  Receive Date: 20111219
  Receipt Date: 20121023
  Transmission Date: 20140127
  Serious: Yes (Other)
  Sender: FDA-Public Use
  Company Number: ENTC2011-0252

PATIENT
  Sex: Female

DRUGS (1)
  1. STALEVO [Suspect]
     Dosage: ORAL
     Route: 048

REACTIONS (2)
  - FREEZING PHENOMENON [None]
  - FALL [None]
